FAERS Safety Report 6743317-8 (Version None)
Quarter: 2010Q2

REPORT INFORMATION
  Report Type: 
  Country: None (occurrence: None)
  Receive Date: 20100525
  Receipt Date: 20100514
  Transmission Date: 20101027
  Serious: Yes (Other)
  Sender: FDA-Public Use
  Company Number: CL-119-2010

PATIENT
  Age: 1 Month
  Sex: Female
  Weight: 3.45 kg

DRUGS (1)
  1. CIPROFLOXACIN [Suspect]
     Indication: DIARRHOEA INFECTIOUS
     Dosage: 250 MG OD ORAL
     Route: 048
     Dates: start: 20090414, end: 20090414

REACTIONS (3)
  - MATERNAL DRUGS AFFECTING FOETUS [None]
  - REVERSIBLE ISCHAEMIC NEUROLOGICAL DEFICIT [None]
  - TRANSIENT ISCHAEMIC ATTACK [None]
